FAERS Safety Report 5090266-X (Version None)
Quarter: 2006Q3

REPORT INFORMATION
  Report Type: 
  Country: None (occurrence: None)
  Receive Date: 20060828
  Receipt Date: 20060629
  Transmission Date: 20061208
  Serious: No
  Sender: FDA-Public Use
  Company Number: US-GLAXOSMITHKLINE-A0610771A

PATIENT
  Age: 54 Year
  Sex: Female
  Weight: 72.7 kg

DRUGS (7)
  1. WELLBUTRIN XL [Suspect]
     Indication: DEPRESSION
     Dosage: 150MG PER DAY
     Route: 048
     Dates: start: 20060601
  2. AMBIEN [Concomitant]
  3. DILTIAZEM HCL [Concomitant]
  4. MIRALAX [Concomitant]
  5. DEPAKOTE [Concomitant]
  6. PREVACID [Concomitant]
  7. ZOMIG [Concomitant]

REACTIONS (1)
  - NECK PAIN [None]
